FAERS Safety Report 16532160 (Version 3)
Quarter: 2019Q4

REPORT INFORMATION
  Report Type: Spontaneous
  Country: BR (occurrence: BR)
  Receive Date: 20190704
  Receipt Date: 20191014
  Transmission Date: 20200122
  Serious: Yes (Hospitalization, Other)
  Sender: FDA-Public Use
  Company Number: BR-PFIZER INC-2019279940

PATIENT
  Age: 58 Year
  Sex: Male
  Weight: 59 kg

DRUGS (2)
  1. SUTENT [Suspect]
     Active Substance: SUNITINIB MALATE
     Indication: RENAL CANCER
     Dosage: 50 MG, CYCLIC (1 TABLET OF 50 MG, 1X/DAY (USES DURING 4 WEEKS AND PAUSES 2 WEEKS)
     Dates: start: 201906, end: 201908
  2. SUTENT [Suspect]
     Active Substance: SUNITINIB MALATE
     Dosage: 50 MG, CYCLIC (1 TABLET OF 50 MG, 1X/DAY (USES DURING 4 WEEKS AND PAUSES 2 WEEKS)
     Dates: start: 20190923

REACTIONS (28)
  - Blood urine present [Recovered/Resolved]
  - Abdominal pain [Unknown]
  - Toothache [Recovered/Resolved]
  - Condition aggravated [Recovered/Resolved]
  - Abdominal distension [Recovered/Resolved]
  - Nephrolithiasis [Recovered/Resolved]
  - Flatulence [Recovered/Resolved]
  - Tongue erythema [Not Recovered/Not Resolved]
  - Urethral obstruction [Recovered/Resolved]
  - Blister [Unknown]
  - Oral pain [Recovered/Resolved]
  - Calculus urethral [Recovered/Resolved]
  - Feeding disorder [Recovered/Resolved]
  - Dysuria [Recovered/Resolved]
  - Malaise [Not Recovered/Not Resolved]
  - Retching [Not Recovered/Not Resolved]
  - Weight decreased [Not Recovered/Not Resolved]
  - Dry skin [Unknown]
  - Gait disturbance [Recovered/Resolved]
  - Chromaturia [Not Recovered/Not Resolved]
  - Renal pain [Not Recovered/Not Resolved]
  - Plantar erythema [Recovered/Resolved]
  - Glossitis [Not Recovered/Not Resolved]
  - Condition aggravated [Not Recovered/Not Resolved]
  - Constipation [Recovered/Resolved]
  - Glossodynia [Recovered/Resolved]
  - Pruritus [Unknown]
  - Mouth injury [Not Recovered/Not Resolved]

NARRATIVE: CASE EVENT DATE: 2019
